FAERS Safety Report 18455347 (Version 1)
Quarter: 2020Q4

REPORT INFORMATION
  Report Type: Spontaneous
  Country: US (occurrence: US)
  Receive Date: 20201103
  Receipt Date: 20201103
  Transmission Date: 20210114
  Serious: Yes (Other)
  Sender: FDA-Public Use
  Company Number: US-009507513-2010USA011059

PATIENT
  Age: 58 Year
  Sex: Female

DRUGS (3)
  1. PEMETREXED DISODIUM [Suspect]
     Active Substance: PEMETREXED DISODIUM
     Indication: LUNG ADENOCARCINOMA
     Dosage: 500 MG/M2/DAY FOR 4 CYCLES,  THEN FOR 31 CYCLES
     Dates: start: 20190318, end: 20200310
  2. CARBOPLATIN. [Suspect]
     Active Substance: CARBOPLATIN
     Indication: LUNG ADENOCARCINOMA
     Dosage: FOR 4 CYCLES
     Dates: start: 20190318, end: 20190902
  3. KEYTRUDA [Suspect]
     Active Substance: PEMBROLIZUMAB
     Indication: LUNG ADENOCARCINOMA
     Dosage: 200 MG EVERY 21 DAYS FOR 4 CYCLES,  THEN FOR 31 CYCLES
     Dates: start: 20190318, end: 20200310

REACTIONS (3)
  - Fatigue [Unknown]
  - Hypothyroidism [Unknown]
  - Erythema multiforme [Unknown]

NARRATIVE: CASE EVENT DATE: 20200322
